FAERS Safety Report 5224844-1 (Version None)
Quarter: 2007Q1

REPORT INFORMATION
  Report Type: 
  Country: None (occurrence: None)
  Receive Date: 20070126
  Receipt Date: 20070116
  Transmission Date: 20070707
  Serious: Yes (Death, Hospitalization)
  Sender: FDA-Public Use
  Company Number: B0454966A

PATIENT
  Age: 41 Year
  Sex: Female

DRUGS (1)
  1. WELLBUTRIN XL [Suspect]
     Dosage: 300 MG / SEE DOSAGE TEXT / ORAL
     Route: 048

REACTIONS (9)
  - APNOEA [None]
  - BLOOD PH INCREASED [None]
  - BLOOD POTASSIUM DECREASED [None]
  - BLOOD SODIUM INCREASED [None]
  - BUNDLE BRANCH BLOCK [None]
  - CARDIAC ARREST [None]
  - CONVULSION [None]
  - HEART RATE INCREASED [None]
  - OVERDOSE [None]
